FAERS Safety Report 19394275 (Version 2)
Quarter: 2021Q2

REPORT INFORMATION
  Report Type: Spontaneous
  Country: JP (occurrence: JP)
  Receive Date: 20210609
  Receipt Date: 20210630
  Transmission Date: 20210717
  Serious: Yes (Other)
  Sender: FDA-Public Use
  Company Number: JP-UCBSA-2021028177

PATIENT
  Age: 37 Year
  Sex: Female

DRUGS (7)
  1. XYZAL [Suspect]
     Active Substance: LEVOCETIRIZINE DIHYDROCHLORIDE
     Indication: ASTHMA
     Dosage: 10 MILLIGRAM
     Route: 048
     Dates: start: 20170215
  2. XOLAIR [Suspect]
     Active Substance: OMALIZUMAB
     Indication: PRODUCT USED FOR UNKNOWN INDICATION
     Dosage: UNK
     Dates: start: 20170710
  3. RELVAR ELLIPTA [FLUTICASONE FUROATE;VILANTEROL TRIFENATATE] [Suspect]
     Active Substance: FLUTICASONE FUROATE\VILANTEROL TRIFENATATE
     Indication: ASTHMA
     Dosage: 200 MICROGRAM, ONCE DAILY (QD)
     Route: 055
     Dates: start: 20170314, end: 201808
  4. SULTANOL [Suspect]
     Active Substance: ALBUTEROL SULFATE
     Indication: ASTHMA
     Dosage: TWICE DURING ATTACK
     Route: 055
     Dates: start: 20170630
  5. HOKUNALIN [TULOBUTEROL] [Concomitant]
     Active Substance: TULOBUTEROL
     Indication: ASTHMA
     Dosage: 2 MILLIGRAM, ONCE DAILY (QD)
     Dates: start: 20170215
  6. KIPRES [Concomitant]
     Active Substance: MONTELUKAST SODIUM
     Indication: ASTHMA
     Dosage: 10 MILLIGRAM
     Dates: start: 20170215
  7. MEPOLIZUMAB [Suspect]
     Active Substance: MEPOLIZUMAB
     Indication: ASTHMA
     Dosage: 100 MG, SINGLE
     Route: 058
     Dates: start: 20170821, end: 20170821

REACTIONS (6)
  - Dyspnoea [Recovered/Resolved]
  - Swollen tongue [Recovered/Resolved]
  - Anaphylactoid reaction [Recovered/Resolved]
  - Product use issue [Unknown]
  - Swelling face [Recovered/Resolved]
  - Pharyngeal swelling [Recovered/Resolved]

NARRATIVE: CASE EVENT DATE: 20170215
